FAERS Safety Report 7047323-8 (Version None)
Quarter: 2010Q4

REPORT INFORMATION
  Report Type: 
  Country: None (occurrence: None)
  Receive Date: 20101015
  Receipt Date: 20101004
  Transmission Date: 20110411
  Serious: Yes (Hospitalization, Other)
  Sender: FDA-Public Use
  Company Number: PHHY2010JP58074

PATIENT
  Age: 45 Year
  Sex: Male

DRUGS (10)
  1. GLEEVEC [Suspect]
     Indication: ACUTE LYMPHOCYTIC LEUKAEMIA
     Dosage: UNK
     Route: 048
  2. METHOTREXAT [Suspect]
     Indication: ACUTE LYMPHOCYTIC LEUKAEMIA
     Dosage: UNK
     Route: 041
     Dates: start: 20091211
  3. CHEMOTHERAPEUTICS NOS [Concomitant]
  4. DASATINIB [Concomitant]
  5. CYCLOPHOSPHAMIDE [Concomitant]
  6. IRRADIATION/ TOTAL BODY IRRADIATION [Concomitant]
  7. TACROLIMUS [Concomitant]
  8. METHOTREXATE [Concomitant]
  9. STEROIDS NOS / STEROID PULSE THERAPY [Concomitant]
  10. GAMMA GLOBULIN / GAMMA GLOBULIN MASSIVE DOSE THERAPY [Concomitant]

REACTIONS (10)
  - BONE MARROW TRANSPLANT [None]
  - DIARRHOEA [None]
  - DRUG INTOLERANCE [None]
  - GRAFT VERSUS HOST DISEASE [None]
  - HYPOAESTHESIA [None]
  - LEUKAEMIA RECURRENT [None]
  - MUSCULAR WEAKNESS [None]
  - PARALYSIS FLACCID [None]
  - SPINAL CORD DISORDER [None]
  - TEMPERATURE INTOLERANCE [None]
